FAERS Safety Report 8090707-X (Version None)
Quarter: 2012Q1

REPORT INFORMATION
  Report Type: 
  Country: None (occurrence: None)
  Receive Date: 20120130
  Receipt Date: 20120126
  Transmission Date: 20120608
  Serious: Yes (Hospitalization, Disabling)
  Sender: FDA-Public Use
  Company Number: US-MERCK-1201USA03705

PATIENT
  Age: 78 Year
  Sex: Female

DRUGS (2)
  1. FOSAMAX [Suspect]
     Route: 048
     Dates: start: 20010101, end: 20080101
  2. FOSAMAX [Suspect]
     Route: 048
     Dates: start: 20080401, end: 20100101

REACTIONS (4)
  - LOW TURNOVER OSTEOPATHY [None]
  - FEMUR FRACTURE [None]
  - DEVICE FAILURE [None]
  - FRACTURE NONUNION [None]
